FAERS Safety Report 11790645 (Version 1)
Quarter: 2015Q4

REPORT INFORMATION
  Report Type: Spontaneous
  Country: US (occurrence: US)
  Receive Date: 20151201
  Receipt Date: 20151201
  Transmission Date: 20160305
  Serious: No
  Sender: FDA-Public Use
  Company Number: US-WARNER CHILCOTT, LLC-1044860

PATIENT
  Age: 24 Year
  Sex: Female
  Weight: 63.64 kg

DRUGS (3)
  1. CLARITIN [Concomitant]
     Active Substance: LORATADINE
  2. NORGESTIMATE [Suspect]
     Active Substance: NORGESTIMATE
     Route: 048
     Dates: start: 2014, end: 201409
  3. LO LOESTRIN FE [Suspect]
     Active Substance: ETHINYL ESTRADIOL\NORETHINDRONE ACETATE
     Indication: ACNE
     Route: 048
     Dates: start: 201408, end: 201408

REACTIONS (3)
  - Acne [Recovering/Resolving]
  - Skin exfoliation [Not Recovered/Not Resolved]
  - Skin discolouration [Not Recovered/Not Resolved]

NARRATIVE: CASE EVENT DATE: 201408
